FAERS Safety Report 6106951-4 (Version None)
Quarter: 2009Q1

REPORT INFORMATION
  Report Type: 
  Country: None (occurrence: None)
  Receive Date: 20090306
  Receipt Date: 20090306
  Transmission Date: 20090719
  Serious: Yes (Other)
  Sender: FDA-Public Use
  Company Number: None

PATIENT
  Sex: Male
  Weight: 97.5234 kg

DRUGS (2)
  1. TRAZODONE HCL [Suspect]
     Indication: ANXIETY
     Dosage: 1 100MG TAB BEDTIME
     Dates: start: 20090212, end: 20090213
  2. TRAZODONE HCL [Suspect]
     Indication: SLEEP DISORDER
     Dosage: 1 100MG TAB BEDTIME
     Dates: start: 20090212, end: 20090213

REACTIONS (2)
  - OBSTRUCTIVE AIRWAYS DISORDER [None]
  - ORTHOPNOEA [None]
